FAERS Safety Report 9601207 (Version 3)
Quarter: 2013Q4

REPORT INFORMATION
  Report Type: Spontaneous
  Country: FI (occurrence: FI)
  Receive Date: 20131005
  Receipt Date: 20131128
  Transmission Date: 20140711
  Serious: Yes (Other)
  Sender: FDA-Public Use
  Company Number: FI-JNJFOC-2010012535

PATIENT
  Age: 46 Year
  Sex: Male
  Weight: 92 kg

DRUGS (14)
  1. NICORETTE PATCH [Suspect]
     Route: 062
  2. NICORETTE PATCH [Suspect]
     Indication: SMOKING CESSATION THERAPY
     Dosage: DAILY DOSE TEXT: UNKNOWN??1/2 TABLET DAILY;
     Route: 062
     Dates: start: 2006, end: 2007
  3. NICORETTE GUM [Suspect]
     Indication: SMOKING CESSATION THERAPY
     Dosage: DAILY DOSE TEXT: 2MG AND 4MG UNSPECIFIED
     Route: 048
     Dates: start: 2006, end: 2007
  4. CHAMPIX [Suspect]
     Indication: NICOTINE DEPENDENCE
     Dosage: DAILY DOSE TEXT: 1MG, 2X/ DAY
     Route: 048
     Dates: start: 20070709, end: 200711
  5. CHAMPIX [Suspect]
     Indication: NICOTINE DEPENDENCE
     Dosage: DAILY DOSE TEXT: 0.5MG, 1X/DAY
     Route: 048
     Dates: start: 20070702, end: 20070704
  6. CHAMPIX [Suspect]
     Indication: NICOTINE DEPENDENCE
     Dosage: DAILY DOSE TEXT: 0.5MG, 2X/DAY
     Route: 048
     Dates: start: 20070705, end: 20070708
  7. AMOXIN [Interacting]
     Indication: SINUSITIS
     Route: 048
     Dates: start: 20071105, end: 20071109
  8. RINEXIN [Interacting]
     Indication: PRODUCT USED FOR UNKNOWN INDICATION
     Route: 048
     Dates: start: 20071105
  9. CIPRALEX [Suspect]
     Indication: PRODUCT USED FOR UNKNOWN INDICATION
     Route: 065
     Dates: start: 20071218
  10. PENTOXYVERINE CITRATE [Concomitant]
     Indication: PRODUCT USED FOR UNKNOWN INDICATION
     Route: 065
     Dates: start: 20071001
  11. CLARITHROMYCIN [Concomitant]
     Indication: PRODUCT USED FOR UNKNOWN INDICATION
     Route: 065
  12. DOXIMYCIN [Concomitant]
     Indication: PRODUCT USED FOR UNKNOWN INDICATION
     Route: 065
  13. AZITHROMYCIN [Concomitant]
     Indication: PRODUCT USED FOR UNKNOWN INDICATION
     Route: 065
     Dates: start: 20071024
  14. HAVRIX [Concomitant]
     Indication: HEPATITIS A
     Dosage: DAILY DOSE TEXT: UNKNOWN
     Route: 030
     Dates: start: 20070629, end: 20070629

REACTIONS (54)
  - Hallucination [Unknown]
  - Withdrawal syndrome [Recovered/Resolved]
  - Aggression [Unknown]
  - Anosmia [Not Recovered/Not Resolved]
  - Restlessness [Unknown]
  - Vasodilatation [Recovered/Resolved]
  - Agitation [Unknown]
  - Drug interaction [Recovered/Resolved]
  - Blood glucose increased [Unknown]
  - Depression [Not Recovered/Not Resolved]
  - Confusional state [Unknown]
  - Mood swings [Not Recovered/Not Resolved]
  - Hyposmia [Not Recovered/Not Resolved]
  - Acute sinusitis [Not Recovered/Not Resolved]
  - Hepatic steatosis [Not Recovered/Not Resolved]
  - Hypothyroidism [Not Recovered/Not Resolved]
  - Adjustment disorder with mixed anxiety and depressed mood [Not Recovered/Not Resolved]
  - Memory impairment [Not Recovered/Not Resolved]
  - Activities of daily living impaired [Not Recovered/Not Resolved]
  - Vertigo [Not Recovered/Not Resolved]
  - Irritability [Recovered/Resolved]
  - Nightmare [Unknown]
  - Anxiety [Unknown]
  - Increased appetite [Unknown]
  - Sleep disorder [Not Recovered/Not Resolved]
  - Medication error [Recovered/Resolved]
  - Tinnitus [Not Recovered/Not Resolved]
  - Panic reaction [Unknown]
  - Infection [Recovered/Resolved]
  - Sense of oppression [Recovered/Resolved]
  - Weight increased [Not Recovered/Not Resolved]
  - Fatigue [Unknown]
  - Euphoric mood [Recovered/Resolved]
  - Blood cholesterol increased [Unknown]
  - Overweight [Not Recovered/Not Resolved]
  - Influenza [Not Recovered/Not Resolved]
  - Upper respiratory tract infection [Not Recovered/Not Resolved]
  - Erythema [Recovered/Resolved]
  - Nausea [Recovered/Resolved]
  - Fear [Unknown]
  - Confusional state [Recovered/Resolved]
  - Feeling abnormal [Unknown]
  - Personality change [Unknown]
  - Swelling [Not Recovered/Not Resolved]
  - Lower respiratory tract infection [Recovered/Resolved]
  - Musculoskeletal discomfort [Unknown]
  - Dyspnoea [Recovered/Resolved]
  - Drug dependence [Recovered/Resolved]
  - Overdose [Recovered/Resolved]
  - Hypersensitivity [Not Recovered/Not Resolved]
  - Palpitations [Recovered/Resolved]
  - Dizziness [Unknown]
  - Abdominal discomfort [Recovered/Resolved]
  - Dyspnoea [Unknown]
